FAERS Safety Report 7290113-1 (Version None)
Quarter: 2011Q1

REPORT INFORMATION
  Report Type: 
  Country: None (occurrence: None)
  Receive Date: 20110214
  Receipt Date: 20110207
  Transmission Date: 20110831
  Serious: Yes (Hospitalization)
  Sender: FDA-Public Use
  Company Number: IT-BRISTOL-MYERS SQUIBB COMPANY-15398928

PATIENT
  Age: 73 Year
  Sex: Male

DRUGS (12)
  1. LASIX [Suspect]
     Indication: MYOCARDIAL ISCHAEMIA
     Dosage: 1 DF:1 UNIT 25MG
     Route: 048
     Dates: start: 20090101, end: 20100922
  2. TENORMIN [Concomitant]
     Route: 048
  3. ACETYLSALICYLIC ACID [Concomitant]
     Route: 048
  4. ANTRA [Concomitant]
     Route: 048
  5. CIPRALEX [Concomitant]
     Route: 048
  6. KANRENOL [Suspect]
     Indication: MYOCARDIAL ISCHAEMIA
     Dosage: 1 DF: 1 UNIT FORMULATION: 100MG
     Route: 048
     Dates: start: 20090101, end: 20100922
  7. ENAPREN [Suspect]
     Indication: MYOCARDIAL ISCHAEMIA
     Dosage: 1 DF:1 UNIT 5 MG
     Route: 048
     Dates: start: 20090101, end: 20100922
  8. EUTIROX [Concomitant]
     Route: 048
  9. PRADIF [Concomitant]
     Route: 048
  10. ALLOPURINOL [Concomitant]
     Route: 048
  11. GLUCOPHAGE [Suspect]
     Indication: DIABETES MELLITUS
     Dosage: 1 DF:3 UNITS FORMULATION: 1000MG
     Route: 048
     Dates: start: 20090101, end: 20100922
  12. MODURETIC 5-50 [Suspect]
     Indication: MYOCARDIAL ISCHAEMIA
     Dosage: 1 DF:1 UNIT STRENGTH:5MG AND 50MG
     Route: 048
     Dates: start: 20090101, end: 20100922

REACTIONS (2)
  - RENAL FAILURE CHRONIC [None]
  - HYPERKALAEMIA [None]
